FAERS Safety Report 8593995-6 (Version None)
Quarter: 2012Q3

REPORT INFORMATION
  Report Type: 
  Country: None (occurrence: None)
  Receive Date: 20120814
  Receipt Date: 20120730
  Transmission Date: 20120928
  Serious: Yes (Death, Hospitalization)
  Sender: FDA-Public Use
  Company Number: MX-WATSON-2012-13947

PATIENT
  Age: 70 Year
  Sex: Female

DRUGS (1)
  1. SIMVASTATIN [Suspect]
     Indication: CORONARY ARTERY DISEASE
     Dosage: 80 MG, DAILY
     Route: 048

REACTIONS (8)
  - RENAL FAILURE [None]
  - ESCHERICHIA INFECTION [None]
  - PULMONARY OEDEMA [None]
  - SEPTIC SHOCK [None]
  - RHABDOMYOLYSIS [None]
  - HEPATIC FAILURE [None]
  - MULTI-ORGAN FAILURE [None]
  - MYOCARDIAL INFARCTION [None]
